FAERS Safety Report 11905034 (Version 5)
Quarter: 2018Q4

REPORT INFORMATION
  Report Type: Spontaneous
  Country: US (occurrence: US)
  Receive Date: 20160108
  Receipt Date: 20181030
  Transmission Date: 20190204
  Serious: Yes (Hospitalization)
  Sender: FDA-Public Use
  Company Number: US-DSJP-DSU-2015-130775

PATIENT

DRUGS (7)
  1. CHLORDIAZEPOXIDE W/CLIDINIUM [Concomitant]
     Active Substance: CHLORDIAZEPOXIDE\CLIDINIUM
     Indication: PRODUCT USED FOR UNKNOWN INDICATION
     Dosage: 5-2.5MG, BID
     Route: 048
  2. TYLENOL [Concomitant]
     Active Substance: ACETAMINOPHEN
     Indication: PRODUCT USED FOR UNKNOWN INDICATION
     Dosage: 500 MG, PRN
  3. BENICAR [Suspect]
     Active Substance: OLMESARTAN MEDOXOMIL
     Indication: HYPERTENSION
     Dosage: 20 MG, QD
     Dates: start: 20081016, end: 201308
  4. COLACE [Concomitant]
     Active Substance: DOCUSATE SODIUM
     Indication: PRODUCT USED FOR UNKNOWN INDICATION
     Dosage: UNK, PRN
  5. ASPIRIN                            /00002701/ [Concomitant]
     Active Substance: ASPIRIN
     Indication: PRODUCT USED FOR UNKNOWN INDICATION
     Dosage: 81 MG, QD
  6. PRILOSEC [Concomitant]
     Active Substance: OMEPRAZOLE MAGNESIUM
     Indication: PRODUCT USED FOR UNKNOWN INDICATION
     Dosage: 20 MG, PRN
     Route: 048
     Dates: start: 20080925
  7. IBUPROFEN. [Concomitant]
     Active Substance: IBUPROFEN
     Indication: PRODUCT USED FOR UNKNOWN INDICATION
     Dosage: UNK, PRN

REACTIONS (15)
  - Cholecystitis [Recovered/Resolved]
  - Syncope [Unknown]
  - Coeliac disease [Recovered/Resolved]
  - Constipation [Recovered/Resolved]
  - Rectal haemorrhage [Unknown]
  - Biliary dyskinesia [Recovered/Resolved]
  - Muscle spasms [Unknown]
  - Memory impairment [Not Recovered/Not Resolved]
  - Duodenitis [Unknown]
  - Hepatic function abnormal [Unknown]
  - Sprue-like enteropathy [Recovered/Resolved]
  - Haemorrhoids [Unknown]
  - Gastroenteritis bacterial [Recovered/Resolved]
  - Diverticulum [Unknown]
  - Anxiety [Not Recovered/Not Resolved]

NARRATIVE: CASE EVENT DATE: 2009
